FAERS Safety Report 26171112 (Version 1)
Quarter: 2025Q4

REPORT INFORMATION
  Report Type: Spontaneous
  Country: GB (occurrence: None)
  Receive Date: 20251217
  Receipt Date: 20251217
  Transmission Date: 20260117
  Serious: Yes (Other)
  Sender: B. BRAUN MEDICAL INC.
  Company Number: None

PATIENT
  Sex: Female

DRUGS (4)
  1. ACETAMINOPHEN [Suspect]
     Active Substance: ACETAMINOPHEN
  2. PROCYCLIDINE [Suspect]
     Active Substance: PROCYCLIDINE
     Indication: Product used for unknown indication
  3. PROCYCLIDINE [Suspect]
     Active Substance: PROCYCLIDINE
  4. ZUCLOPENTHIXOL [Suspect]
     Active Substance: ZUCLOPENTHIXOL
     Indication: Product used for unknown indication

REACTIONS (18)
  - Near death experience [Unknown]
  - Angina pectoris [Unknown]
  - Asthenia [Unknown]
  - Fatigue [Unknown]
  - Pain [Unknown]
  - Headache [Unknown]
  - Gastrointestinal pain [Unknown]
  - Myalgia [Unknown]
  - Dizziness [Unknown]
  - Feeling hot [Unknown]
  - Nasal congestion [Unknown]
  - Arthralgia [Unknown]
  - Eye pain [Unknown]
  - Discomfort [Unknown]
  - Feeling of despair [Unknown]
  - Anxiety [Unknown]
  - Therapeutic product effect decreased [Unknown]
  - Drug ineffective [Unknown]
